FAERS Safety Report 25195995 (Version 2)
Quarter: 2025Q2

REPORT INFORMATION
  Report Type: Spontaneous
  Country: JP (occurrence: JP)
  Receive Date: 20250415
  Receipt Date: 20250425
  Transmission Date: 20250716
  Serious: Yes (Other)
  Sender: GLAXOSMITHKLINE
  Company Number: JP-GSKJP-JP2025JPN041914AA

PATIENT

DRUGS (1)
  1. VALTREX [Suspect]
     Active Substance: VALACYCLOVIR HYDROCHLORIDE
     Indication: Herpes zoster
     Dosage: 3000 MG, QD

REACTIONS (9)
  - Toxic encephalopathy [Unknown]
  - Herpes zoster meningitis [Unknown]
  - Depressed level of consciousness [Recovering/Resolving]
  - Renal impairment [Unknown]
  - Altered state of consciousness [Unknown]
  - Nephropathy toxic [Unknown]
  - Incoherent [Unknown]
  - Disorientation [Unknown]
  - Metabolic acidosis [Unknown]
